FAERS Safety Report 14456477 (Version 1)
Quarter: 2018Q1

REPORT INFORMATION
  Report Type: Spontaneous
  Country: NO (occurrence: NO)
  Receive Date: 20180130
  Receipt Date: 20180130
  Transmission Date: 20180509
  Serious: Yes (Disabling, Other)
  Sender: FDA-Public Use
  Company Number: NO-AMGEN-NORSP2018009340

PATIENT
  Age: 91 Year
  Sex: Female

DRUGS (3)
  1. PANODIL [Concomitant]
     Active Substance: ACETAMINOPHEN
     Indication: PAIN
     Dosage: 1000 MG, Q12H
     Route: 048
     Dates: start: 201702
  2. PROLIA [Suspect]
     Active Substance: DENOSUMAB
     Indication: OSTEOPOROSIS
     Dosage: 60 MG, Q6MO
     Route: 058
     Dates: start: 20170217, end: 201709
  3. CALCIGRAN FORTE [Concomitant]
     Active Substance: CALCIUM CARBONATE\CHOLECALCIFEROL
     Indication: OSTEOPOROSIS
     Dosage: 2 UNK, UNK (CHOLECALCIFEROL): 400[IU]; INGREDIENT (CALCIUM CARBONATE): 500MG
     Route: 048
     Dates: start: 201702

REACTIONS (1)
  - Perichondritis [Not Recovered/Not Resolved]

NARRATIVE: CASE EVENT DATE: 201705
